FAERS Safety Report 9742052 (Version 3)
Quarter: 2014Q1

REPORT INFORMATION
  Report Type: Spontaneous
  Country: CH (occurrence: CH)
  Receive Date: 20131210
  Receipt Date: 20140217
  Transmission Date: 20141002
  Serious: Yes (Death, Other)
  Sender: FDA-Public Use
  Company Number: CH-JNJFOC-20131118289

PATIENT
  Age: 80 Year
  Sex: Male

DRUGS (1)
  1. ZYTIGA [Suspect]
     Indication: PROSTATE CANCER
     Route: 048
     Dates: start: 20130402, end: 20130802

REACTIONS (11)
  - Death [Fatal]
  - Hyponatraemia [Recovered/Resolved]
  - Oedema [Unknown]
  - Asthenia [Unknown]
  - Haematuria [Unknown]
  - Hypokalaemia [Recovered/Resolved]
  - Hypocalcaemia [Recovered/Resolved]
  - Hypophosphataemia [Recovered/Resolved]
  - Cardiac failure [Unknown]
  - Urosepsis [Unknown]
  - Gastric haemorrhage [Unknown]
